FAERS Safety Report 23198557 (Version 2)
Quarter: 2023Q4

REPORT INFORMATION
  Report Type: Report from Study
  Country: NO (occurrence: NO)
  Receive Date: 20231117
  Receipt Date: 20231128
  Transmission Date: 20240109
  Serious: Yes (Hospitalization)
  Sender: FDA-Public Use
  Company Number: NO-PFIZER INC-202300380503

PATIENT
  Age: 57 Year
  Sex: Male
  Weight: 100.6 kg

DRUGS (14)
  1. ELRANATAMAB [Suspect]
     Active Substance: ELRANATAMAB
     Indication: Plasma cell myeloma
     Dosage: 76.0 MG, WEEKLY
     Route: 058
     Dates: start: 20230828
  2. LOPERAMIDE [Concomitant]
     Active Substance: LOPERAMIDE
     Indication: Diarrhoea
     Dosage: 2 MG, AS NEEDED
     Route: 048
     Dates: start: 2022
  3. SULFAMETHOXAZOLE\TRIMETHOPRIM [Concomitant]
     Active Substance: SULFAMETHOXAZOLE\TRIMETHOPRIM
     Indication: Antifungal prophylaxis
     Dosage: [SULFAMETHOXAZOLE 400MG]/[TRIMETHOPRIM 80MG], 3 TIMES PER WEEK
     Route: 048
     Dates: start: 20230828
  4. MOMETASONE FUROATE [Concomitant]
     Active Substance: MOMETASONE FUROATE
     Indication: Rash
     Dosage: 0.1 %, AS NEEDED
     Route: 061
     Dates: start: 20230902
  5. DIAZEPAM [Concomitant]
     Active Substance: DIAZEPAM
     Indication: Sleep disorder
     Dosage: 5 MG, AS NEEDED
     Route: 048
     Dates: start: 2017
  6. XYLOMETAZOLINE [Concomitant]
     Active Substance: XYLOMETAZOLINE
     Indication: Nasal congestion
     Dosage: 1 SPRAY, AS NEEDED
     Route: 045
     Dates: start: 2000
  7. TADALAFIL [Concomitant]
     Active Substance: TADALAFIL
     Indication: Erectile dysfunction
     Dosage: 20 MG, AS NEEDED, ROUTE: ORAL GAVAGE
     Dates: start: 20230828
  8. CANNABIDIOL/TETRAHYDROCANNABINOLS NOS [Concomitant]
     Indication: Neuropathy peripheral
     Dosage: 1 INHALATION, AS NEEDED
     Route: 048
     Dates: start: 2021
  9. METOCLOPRAMIDE [Concomitant]
     Active Substance: METOCLOPRAMIDE
     Indication: Nausea
     Dosage: 10 MG, AS NEEDED
     Route: 048
     Dates: start: 20230831
  10. OXYCODONE [Concomitant]
     Active Substance: OXYCODONE
     Indication: Peripheral sensory neuropathy
     Dosage: 5 MG, AS NEEDED
     Route: 048
     Dates: start: 2014
  11. OXYCODONE [Concomitant]
     Active Substance: OXYCODONE
     Indication: Cytokine release syndrome
  12. TRAMADOL [Concomitant]
     Active Substance: TRAMADOL\TRAMADOL HYDROCHLORIDE
     Indication: Pain in jaw
     Dosage: 50 MG, AS NEEDED
     Route: 048
     Dates: start: 20230913
  13. TRAMADOL [Concomitant]
     Active Substance: TRAMADOL\TRAMADOL HYDROCHLORIDE
     Indication: Headache
  14. VALACYCLOVIR HYDROCHLORIDE [Concomitant]
     Active Substance: VALACYCLOVIR HYDROCHLORIDE
     Indication: Antiviral prophylaxis
     Dosage: 250 MG, 2X/DAY
     Route: 048
     Dates: start: 20230828

REACTIONS (1)
  - Pneumonia [Recovering/Resolving]

NARRATIVE: CASE EVENT DATE: 20231101
